FAERS Safety Report 4588206-2 (Version None)
Quarter: 2005Q1

REPORT INFORMATION
  Report Type: 
  Country: None (occurrence: None)
  Receive Date: 20050221
  Receipt Date: 20011211
  Transmission Date: 20050727
  Serious: Yes (Life-Threatening, Hospitalization)
  Sender: FDA-Public Use
  Company Number: CA-ROCHE-303417

PATIENT
  Age: 53 Year
  Sex: Male
  Weight: 74 kg

DRUGS (14)
  1. PEG-INTERFERON ALFA 2A (RO 25-8310) [Suspect]
     Route: 058
     Dates: start: 20010925, end: 20011130
  2. RIBAVIRIN [Suspect]
     Route: 048
     Dates: start: 20010925, end: 20011206
  3. TYLENOL W/ CODEINE NO. 3 [Concomitant]
     Dates: start: 19940615, end: 20011206
  4. PAXIL [Concomitant]
     Dates: start: 20010615, end: 20011206
  5. VITAMIN C [Concomitant]
     Dates: end: 20011206
  6. VITAMIN E [Concomitant]
     Dates: end: 20011206
  7. VITAMIN B COMPLEX CAP [Concomitant]
     Dates: end: 20011206
  8. XANAX [Concomitant]
     Dates: start: 19930615, end: 20011206
  9. DITROPAN [Concomitant]
     Dates: start: 20011115, end: 20011206
  10. HYDROCHLOROTHIAZIDE [Concomitant]
     Dates: start: 20011213, end: 20020102
  11. LEVOFLOXACIN [Concomitant]
     Dates: start: 20011217, end: 20011224
  12. K-DUR 10 [Concomitant]
     Dates: start: 20011215, end: 20011226
  13. THIAMINE [Concomitant]
     Dates: start: 20011207
  14. CEFOTAXIME [Concomitant]
     Dates: start: 20011207

REACTIONS (8)
  - DELIRIUM [None]
  - GASTROINTESTINAL HAEMORRHAGE [None]
  - HEPATIC FAILURE [None]
  - LIVER TRANSPLANT [None]
  - OESOPHAGEAL VARICES HAEMORRHAGE [None]
  - PNEUMONIA [None]
  - PNEUMONIA PNEUMOCOCCAL [None]
  - SEPSIS [None]
